FAERS Safety Report 8855581 (Version 3)
Quarter: 2016Q2

REPORT INFORMATION
  Report Type: Report from Study
  Country: US (occurrence: US)
  Receive Date: 20121023
  Receipt Date: 20160426
  Transmission Date: 20160815
  Serious: Yes (Other)
  Sender: FDA-Public Use
  Company Number: US-AMGEN-USASP2012059914

PATIENT
  Age: 46 Year
  Sex: Female

DRUGS (2)
  1. ENBREL [Suspect]
     Active Substance: ETANERCEPT
     Indication: RHEUMATOID ARTHRITIS
     Dosage: 50 MG, QWK
     Route: 058
     Dates: start: 2002
  2. METHOTREXATE [Concomitant]
     Active Substance: METHOTREXATE
     Dosage: TAKES 10 OF METHOTREXATE WEEKLY

REACTIONS (7)
  - Throat lesion [Unknown]
  - Malaise [Unknown]
  - Influenza [Unknown]
  - Frustration tolerance decreased [Unknown]
  - Clostridium difficile infection [Recovered/Resolved]
  - Sinusitis [Unknown]
  - Pain [Unknown]
